FAERS Safety Report 9789090 (Version 7)
Quarter: 2014Q4

REPORT INFORMATION
  Report Type: Report from Study
  Country: NL (occurrence: NL)
  Receive Date: 20131230
  Receipt Date: 20141126
  Transmission Date: 20150529
  Serious: Yes (Death, Hospitalization)
  Sender: FDA-Public Use
  Company Number: PHHO2013NL001690

PATIENT
  Age: 62 Year
  Sex: Female
  Weight: 72.1 kg

DRUGS (10)
  1. PROGRAF [Suspect]
     Active Substance: TACROLIMUS\TACROLIMUS ANHYDROUS
     Indication: RENAL TRANSPLANT
     Dosage: 2XDD 3 MG, BID
     Dates: start: 20110813, end: 20130215
  2. METFORMIN [Concomitant]
     Active Substance: METFORMIN HYDROCHLORIDE
     Indication: PROPHYLAXIS
     Dosage: 500 MG, TID
     Dates: start: 20111031
  3. MIMPARA [Concomitant]
     Active Substance: CINACALCET HYDROCHLORIDE
     Indication: PROPHYLAXIS
     Dosage: 30 MG, QD
     Dates: start: 20120112
  4. ZANTAC [Concomitant]
     Active Substance: RANITIDINE HYDROCHLORIDE
     Indication: PROPHYLAXIS
     Dosage: 150 MG, BID
     Dates: start: 20110914, end: 20130125
  5. MYFORTIC [Suspect]
     Active Substance: MYCOPHENOLATE SODIUM
     Indication: RENAL TRANSPLANT
     Dosage: 360 MG, BID, 2XDD
     Dates: start: 20110815, end: 20130215
  6. PREDNISOLONE. [Concomitant]
     Active Substance: PREDNISOLONE
     Indication: RENAL TRANSPLANT
     Dosage: 10 MG, QD 1XDD
     Dates: start: 20110815, end: 20130220
  7. THYRAX [Concomitant]
     Indication: PROPHYLAXIS
     Dosage: 0.1 MG, QD
     Dates: start: 20110824
  8. NIFEDIPIN RETARD [Concomitant]
     Indication: HYPERTENSION
     Dosage: 30 MG, BID
     Dates: start: 20110824
  9. SIMVASTATIN. [Concomitant]
     Active Substance: SIMVASTATIN
     Indication: PROPHYLAXIS
     Dosage: 20 MG, QD
     Dates: start: 20110926
  10. PANTOZOL [Concomitant]
     Active Substance: PANTOPRAZOLE SODIUM
     Indication: PROPHYLAXIS
     Dosage: 40 MG, QD
     Dates: start: 20110812

REACTIONS (6)
  - Metastases to liver [Fatal]
  - Adenocarcinoma [Fatal]
  - Haematemesis [Recovered/Resolved]
  - Peripheral artery thrombosis [Recovered/Resolved]
  - Hepatic cancer [Fatal]
  - Angina pectoris [Recovered/Resolved]

NARRATIVE: CASE EVENT DATE: 20120214
